FAERS Safety Report 9367193 (Version 1)
Quarter: 2013Q2

REPORT INFORMATION
  Report Type: Spontaneous
  Country: US (occurrence: US)
  Receive Date: 20130625
  Receipt Date: 20130625
  Transmission Date: 20140414
  Serious: No
  Sender: FDA-Public Use
  Company Number: US-ASTELLAS-2012US005805

PATIENT
  Sex: 0

DRUGS (1)
  1. VESICARE [Suspect]
     Indication: AUTOMATIC BLADDER
     Dosage: 5 MG, UNKNOWN/D
     Route: 048
     Dates: start: 201205, end: 201206

REACTIONS (4)
  - Off label use [Unknown]
  - Vaginal infection [Unknown]
  - Dry mouth [Unknown]
  - Dry eye [Unknown]
